FAERS Safety Report 21240718 (Version 1)
Quarter: 2022Q3

REPORT INFORMATION
  Report Type: Spontaneous
  Country: US (occurrence: US)
  Receive Date: 20220823
  Receipt Date: 20220823
  Transmission Date: 20221027
  Serious: Yes (Death, Life-Threatening, Other)
  Sender: FDA-Public Use
  Company Number: US-BRISTOL-MYERS SQUIBB COMPANY-2022-090390

PATIENT
  Age: 72 Year
  Sex: Female

DRUGS (9)
  1. REVLIMID [Suspect]
     Active Substance: LENALIDOMIDE
     Indication: Plasma cell myeloma
     Dosage: USE PER DIRECTED
     Route: 048
     Dates: start: 20220615, end: 20220715
  2. REVLIMID [Suspect]
     Active Substance: LENALIDOMIDE
     Dosage: USE PER DIRECTED
     Route: 048
     Dates: start: 20220715, end: 20220812
  3. REVLIMID [Suspect]
     Active Substance: LENALIDOMIDE
     Dosage: DAILY
     Route: 048
     Dates: start: 20220719
  4. REVLIMID [Suspect]
     Active Substance: LENALIDOMIDE
     Route: 048
     Dates: start: 20220812
  5. CETIRIZINE HCL [Concomitant]
     Active Substance: CETIRIZINE HYDROCHLORIDE
     Indication: Product used for unknown indication
     Dosage: DAILY
     Route: 048
     Dates: start: 20190412
  6. ESCITALOPRAM OXALATE [Concomitant]
     Active Substance: ESCITALOPRAM OXALATE
     Indication: Product used for unknown indication
     Dosage: DAILY
     Route: 048
     Dates: start: 20190416
  7. METHADONE HYDROCHLORIDE [Concomitant]
     Active Substance: METHADONE HYDROCHLORIDE
     Indication: Product used for unknown indication
     Route: 048
     Dates: start: 20190412
  8. ACETAMINOPHEN\OXYCODONE HYDROCHLORIDE [Concomitant]
     Active Substance: ACETAMINOPHEN\OXYCODONE HYDROCHLORIDE
     Indication: Product used for unknown indication
     Dosage: 5-325 MG AS NEEDED
     Route: 048
     Dates: start: 20190412
  9. ERGOCALCIFEROL [Concomitant]
     Active Substance: ERGOCALCIFEROL
     Dosage: 50000 UNIT
     Route: 048

REACTIONS (2)
  - Off label use [Recovered/Resolved]
  - Death [Fatal]

NARRATIVE: CASE EVENT DATE: 20220717
